FAERS Safety Report 5484999-0 (Version None)
Quarter: 2007Q4

REPORT INFORMATION
  Report Type: 
  Country: None (occurrence: None)
  Receive Date: 20071015
  Receipt Date: 20071004
  Transmission Date: 20080405
  Serious: Yes (Hospitalization)
  Sender: FDA-Public Use
  Company Number: JP-NOVOPROD-268009

PATIENT
  Age: 11 Year
  Sex: Male
  Weight: 35 kg

DRUGS (4)
  1. PENFILL R CHU [Suspect]
     Indication: TYPE 1 DIABETES MELLITUS
     Dosage: 15 IU, QD
     Dates: end: 20070603
  2. PENFILL N CHU [Suspect]
     Indication: TYPE 1 DIABETES MELLITUS
     Dosage: 8 IU, QD
     Dates: end: 20070603
  3. NOVORAPID CHU [Suspect]
     Indication: TYPE 1 DIABETES MELLITUS
  4. LANTUS [Concomitant]
     Indication: TYPE 1 DIABETES MELLITUS

REACTIONS (2)
  - ANTI-INSULIN ANTIBODY POSITIVE [None]
  - BLOOD GLUCOSE FLUCTUATION [None]
